FAERS Safety Report 13838259 (Version 2)
Quarter: 2017Q3

REPORT INFORMATION
  Report Type: Spontaneous
  Country: JP (occurrence: JP)
  Receive Date: 20170807
  Receipt Date: 20170807
  Transmission Date: 20171127
  Serious: Yes (Death, Life-Threatening, Hospitalization, Other)
  Sender: FDA-Public Use
  Company Number: JP-ROCHE-1972683

PATIENT
  Age: 72 Year
  Sex: Male

DRUGS (3)
  1. AVASTIN [Suspect]
     Active Substance: BEVACIZUMAB
     Indication: LUNG ADENOCARCINOMA
     Dosage: TWO COURSE TO 72 COURSE?DOSAGE IS UNCERTAIN.
     Route: 041
  2. PACLITAXEL. [Concomitant]
     Active Substance: PACLITAXEL
     Indication: LUNG ADENOCARCINOMA
     Dosage: TWO COURSES?DOSAGE IS UNCERTAIN.
     Route: 041
  3. CARBOPLATIN. [Concomitant]
     Active Substance: CARBOPLATIN
     Indication: LUNG ADENOCARCINOMA
     Dosage: TWO COURSES?DOSAGE IS UNCERTAIN.
     Route: 041

REACTIONS (8)
  - Diffuse alveolar damage [Fatal]
  - Malaise [Unknown]
  - Decreased appetite [Unknown]
  - Infectious pleural effusion [Unknown]
  - Pulmonary embolism [Unknown]
  - Pneumothorax [Unknown]
  - Lung infection [Unknown]
  - Deep vein thrombosis [Unknown]
